FAERS Safety Report 5647895-1 (Version None)
Quarter: 2008Q1

REPORT INFORMATION
  Report Type: 
  Country: None (occurrence: None)
  Receive Date: 20080228
  Receipt Date: 20080221
  Transmission Date: 20080703
  Serious: Yes (Hospitalization)
  Sender: FDA-Public Use
  Company Number: OPER20080034

PATIENT
  Age: 68 Year
  Sex: Female
  Weight: 61.2356 kg

DRUGS (6)
  1. OPANA ER [Suspect]
     Indication: PAIN
     Dosage: 20 MG, 1 TAB BID, PER ORAL
     Route: 048
     Dates: start: 20080205, end: 20080212
  2. LISINOPRIL [Concomitant]
  3. KLONOPIN [Concomitant]
  4. VITAMIN B-12 [Concomitant]
  5. PROTONIX [Concomitant]
  6. EFFEXOR XR [Concomitant]

REACTIONS (4)
  - ACCIDENTAL OVERDOSE [None]
  - CONFUSIONAL STATE [None]
  - MIOSIS [None]
  - RESPIRATORY DEPRESSION [None]
